FAERS Safety Report 10986244 (Version 1)
Quarter: 2015Q2

REPORT INFORMATION
  Report Type: Spontaneous
  Country: IT (occurrence: None)
  Receive Date: 20150402
  Receipt Date: 20150402
  Transmission Date: 20150821
  Serious: Yes (Other)
  Sender: FDA-Public Use
  Company Number: 20150930

PATIENT
  Age: 57 Year
  Sex: Female

DRUGS (6)
  1. DIBASE (COLECALCIFEROL) [Concomitant]
  2. NATECAL D3 (CALCIUM CARNONATE + VIT DE, CHOLECALCIFEROL) [Concomitant]
  3. DELTRACORTENE (PREDNISONE) [Concomitant]
  4. FOLINA (FOLIC ACID) [Concomitant]
     Active Substance: FOLIC ACID
  5. HUMIRA [Suspect]
     Active Substance: ADALIMUMAB
     Indication: SPONDYLITIS
     Route: 058
     Dates: start: 20140201, end: 20141222
  6. METHOTREXATE (METHOTREXATE) [Suspect]
     Active Substance: METHOTREXATE
     Indication: SPONDYLITIS
     Route: 030
     Dates: start: 20130415, end: 20141222

REACTIONS (1)
  - Basal cell carcinoma [None]

NARRATIVE: CASE EVENT DATE: 20141222
